FAERS Safety Report 9641439 (Version 1)
Quarter: 2013Q4

REPORT INFORMATION
  Report Type: Spontaneous
  Country: US (occurrence: US)
  Receive Date: 20131023
  Receipt Date: 20131023
  Transmission Date: 20140711
  Serious: No
  Sender: FDA-Public Use
  Company Number: US-ABBVIE-13P-163-1053428-00

PATIENT
  Age: 44 Year
  Sex: Female
  Weight: 54.03 kg

DRUGS (6)
  1. LUPRON DEPOT [Suspect]
     Indication: UTERINE LEIOMYOMA
     Route: 030
  2. LUPRON DEPOT [Suspect]
     Indication: BREAST CANCER
  3. LUPRON DEPOT [Suspect]
     Indication: OVARIAN DISORDER
  4. LEVOTHYROXINE [Suspect]
     Indication: THYROID DISORDER
     Dates: end: 2013
  5. LEVOTHYROXINE [Suspect]
     Dates: start: 2013
  6. TAMOXIFEN [Concomitant]
     Indication: BREAST CANCER

REACTIONS (6)
  - Hot flush [Not Recovered/Not Resolved]
  - Night sweats [Not Recovered/Not Resolved]
  - Weight increased [Not Recovered/Not Resolved]
  - Off label use [Not Recovered/Not Resolved]
  - Weight decreased [Recovered/Resolved]
  - Feeling abnormal [Not Recovered/Not Resolved]
